FAERS Safety Report 8188297-6 (Version None)
Quarter: 2012Q1

REPORT INFORMATION
  Report Type: 
  Country: None (occurrence: None)
  Receive Date: 20120306
  Receipt Date: 20120223
  Transmission Date: 20120608
  Serious: Yes (Hospitalization)
  Sender: FDA-Public Use
  Company Number: CO-ELI_LILLY_AND_COMPANY-CO201202007409

PATIENT
  Age: 68 Year
  Sex: Female

DRUGS (9)
  1. FOLIC ACID [Concomitant]
  2. ASPIRIN [Concomitant]
  3. BIOCALCIUM D3 [Concomitant]
     Indication: SUPPLEMENTATION THERAPY
  4. FORTEO [Suspect]
     Indication: OSTEOPOROSIS
     Dosage: 20 UG, QD
     Route: 058
     Dates: start: 20110701, end: 20111001
  5. PREDNISOLONE [Concomitant]
  6. METOPROLOL SUCCINATE [Concomitant]
  7. FORTEO [Suspect]
     Dosage: 20 UG, QD
     Route: 058
     Dates: start: 20111201
  8. SULFASALAZINE [Concomitant]
  9. VYTORIN [Concomitant]

REACTIONS (3)
  - LOSS OF CONSCIOUSNESS [None]
  - ARTHRALGIA [None]
  - PAIN IN EXTREMITY [None]
